FAERS Safety Report 20000858 (Version 2)
Quarter: 2022Q1

REPORT INFORMATION
  Report Type: Report from Study
  Country: CA (occurrence: CA)
  Receive Date: 20211027
  Receipt Date: 20220225
  Transmission Date: 20220424
  Serious: Yes (Hospitalization, Other)
  Sender: FDA-Public Use
  Company Number: CA-NOVARTISPH-NVSC2021CA096163

PATIENT
  Age: 48 Year
  Sex: Male

DRUGS (4)
  1. MAYZENT [Suspect]
     Active Substance: SIPONIMOD
     Indication: Secondary progressive multiple sclerosis
     Dosage: UNK
     Route: 048
     Dates: start: 20210414
  2. MODAFINIL [Concomitant]
     Active Substance: MODAFINIL
     Indication: Product used for unknown indication
     Dosage: 100 MG, BID
     Route: 048
  3. VITAMIN D3 [Concomitant]
     Active Substance: CHOLECALCIFEROL
     Indication: Product used for unknown indication
     Dosage: UNK UNK, QD (2000 UNITS BY)
     Route: 048
  4. LEVETIRACETAM [Concomitant]
     Active Substance: LEVETIRACETAM
     Indication: Product used for unknown indication
     Dosage: 1000 MG, BID
     Route: 048

REACTIONS (13)
  - Fall [Unknown]
  - Skull fracture [Unknown]
  - Seizure [Unknown]
  - Partial seizures [Unknown]
  - Subdural haematoma [Unknown]
  - Facial paralysis [Unknown]
  - Cerebral haemorrhage [Unknown]
  - Night sweats [Unknown]
  - Limb discomfort [Unknown]
  - Feeling cold [Unknown]
  - Fatigue [Unknown]
  - Dysarthria [Recovered/Resolved]
  - Lymphopenia [Unknown]

NARRATIVE: CASE EVENT DATE: 20210801
